FAERS Safety Report 8181281-8 (Version None)
Quarter: 2012Q1

REPORT INFORMATION
  Report Type: 
  Country: None (occurrence: None)
  Receive Date: 20120302
  Receipt Date: 20120223
  Transmission Date: 20120608
  Serious: Yes (Life-Threatening, Hospitalization)
  Sender: FDA-Public Use
  Company Number: ES-PFIZER INC-2012046249

PATIENT
  Age: 50 Year
  Sex: Male

DRUGS (1)
  1. TIGECYCLINE [Suspect]
     Indication: ACINETOBACTER INFECTION
     Dosage: 50 MG, 2X/DAY
     Route: 042
     Dates: start: 20120109, end: 20120118

REACTIONS (1)
  - DISSEMINATED INTRAVASCULAR COAGULATION [None]
